FAERS Safety Report 21010592 (Version 1)
Quarter: 2022Q2

REPORT INFORMATION
  Report Type: Spontaneous
  Country: HK (occurrence: HK)
  Receive Date: 20220627
  Receipt Date: 20220627
  Transmission Date: 20220720
  Serious: Yes (Other)
  Sender: FDA-Public Use
  Company Number: HK-MEITHEAL-2022MPLIT00092

PATIENT
  Age: 7 Year
  Sex: Female

DRUGS (4)
  1. CARBOPLATIN [Suspect]
     Active Substance: CARBOPLATIN
     Indication: Intracranial germ cell tumour
     Dosage: FOR ONE DAY
     Route: 065
  2. CARBOPLATIN [Suspect]
     Active Substance: CARBOPLATIN
     Dosage: TOTAL OF 36 SUBSEQUENT CYCLES OF CARBOPLATIN FOLLOWING THE FIRST CYCLE OF CHEMOTHERAPY
     Route: 065
  3. ETOPOSIDE [Concomitant]
     Active Substance: ETOPOSIDE
     Indication: Intracranial germ cell tumour
     Dosage: FOR THREE DAYS AS THEIR FIRST INDUCTION CYCLE
     Route: 065
  4. DESMOPRESSIN [Concomitant]
     Active Substance: DESMOPRESSIN
     Indication: Diabetes insipidus
     Route: 065

REACTIONS (2)
  - Renal salt-wasting syndrome [Recovered/Resolved]
  - Off label use [Unknown]
